FAERS Safety Report 18252226 (Version 3)
Quarter: 2021Q1

REPORT INFORMATION
  Report Type: Spontaneous
  Country: US (occurrence: US)
  Receive Date: 20200910
  Receipt Date: 20210315
  Transmission Date: 20210419
  Serious: No
  Sender: FDA-Public Use
  Company Number: US-FARMAPROD-202005-0706

PATIENT
  Age: 79 Year
  Sex: Male

DRUGS (7)
  1. OXERVATE [Suspect]
     Active Substance: CENEGERMIN-BKBJ
     Indication: KERATITIS
     Dosage: STOPPED AFTER 3 DOSES
     Route: 047
     Dates: start: 20200326, end: 20200326
  2. TOBRAMYCIN. [Concomitant]
     Active Substance: TOBRAMYCIN
     Indication: RETINAL PIGMENT EPITHELIOPATHY
  3. TOBRAMYCIN. [Concomitant]
     Active Substance: TOBRAMYCIN
     Indication: CATARACT
     Dates: start: 20190919, end: 20200520
  4. PRED FORTE [Concomitant]
     Active Substance: PREDNISOLONE ACETATE
     Indication: RETINAL PIGMENT EPITHELIOPATHY
  5. AUTOLOGUS SERUM [Concomitant]
     Indication: DRY EYE
     Dates: start: 20191113
  6. AUTOLOGUS SERUM [Concomitant]
     Indication: RETINAL PIGMENT EPITHELIOPATHY
  7. PRED FORTE [Concomitant]
     Active Substance: PREDNISOLONE ACETATE
     Indication: CATARACT
     Dates: start: 20190725, end: 20200520

REACTIONS (2)
  - Hypersensitivity [Recovered/Resolved]
  - Pharyngeal swelling [Recovered/Resolved]

NARRATIVE: CASE EVENT DATE: 20200326
